FAERS Safety Report 6967023-X (Version None)
Quarter: 2010Q3

REPORT INFORMATION
  Report Type: 
  Country: None (occurrence: None)
  Receive Date: 20100907
  Receipt Date: 20100824
  Transmission Date: 20110219
  Serious: Yes (Hospitalization)
  Sender: FDA-Public Use
  Company Number: US-JNJFOC-20100500430

PATIENT
  Sex: Male
  Weight: 79.83 kg

DRUGS (22)
  1. FENTANYL CITRATE [Suspect]
     Indication: PAIN
     Route: 062
  2. FENTANYL CITRATE [Suspect]
     Route: 062
  3. FENTANYL CITRATE [Suspect]
     Route: 062
  4. FENTANYL CITRATE [Suspect]
     Route: 062
  5. DURAGESIC-100 [Suspect]
     Indication: SPINAL LAMINECTOMY
     Route: 062
  6. DURAGESIC-100 [Suspect]
     Indication: OSTEOARTHRITIS
     Route: 062
  7. DURAGESIC-100 [Suspect]
     Indication: RADICULITIS LUMBOSACRAL
     Route: 062
  8. DURAGESIC-100 [Suspect]
     Indication: INTERVERTEBRAL DISC DISORDER
     Route: 062
  9. DURAGESIC-100 [Suspect]
     Route: 062
  10. KLONOPIN [Concomitant]
     Indication: NERVOUSNESS
     Route: 048
  11. WELLBUTRIN XL [Concomitant]
     Indication: DEPRESSION
     Route: 048
  12. PERCOCET [Concomitant]
     Indication: BREAKTHROUGH PAIN
     Dosage: ALTERNATES WITH
     Route: 048
  13. OXYCODONE [Concomitant]
     Indication: BREAKTHROUGH PAIN
     Dosage: 4 TIMES A DAY AS NECESSARY
     Route: 048
  14. ZOFRAN [Concomitant]
     Indication: NAUSEA
     Route: 048
  15. HYDROXYZINE [Concomitant]
     Route: 048
  16. CRESTOR [Concomitant]
     Route: 065
  17. AMRIX [Concomitant]
     Route: 065
  18. OXYCODONE HCL AND ACETAMINOPHEN [Concomitant]
     Indication: OSTEOARTHRITIS
     Dosage: 10 MG TO 325 MG
     Route: 065
  19. OXYCODONE HCL AND ACETAMINOPHEN [Concomitant]
     Indication: SPINAL LAMINECTOMY
     Dosage: 10 MG TO 325 MG
     Route: 065
  20. OXYCODONE HCL AND ACETAMINOPHEN [Concomitant]
     Indication: RADICULITIS LUMBOSACRAL
     Dosage: 10 MG TO 325 MG
     Route: 065
  21. OXYCODONE HCL AND ACETAMINOPHEN [Concomitant]
     Indication: INTERVERTEBRAL DISC DISORDER
     Dosage: 10 MG TO 325 MG
     Route: 065
  22. OXYCODONE HCL AND ACETAMINOPHEN [Concomitant]
     Dosage: 10 MG TO 325 MG
     Route: 065

REACTIONS (6)
  - BLOOD CHOLESTEROL INCREASED [None]
  - DRUG INEFFECTIVE [None]
  - FIBROMYALGIA [None]
  - MUSCULOSKELETAL STIFFNESS [None]
  - OSTEONECROSIS [None]
  - PAIN [None]
